FAERS Safety Report 25007995 (Version 1)
Quarter: 2025Q1

REPORT INFORMATION
  Report Type: Spontaneous
  Country: US (occurrence: US)
  Receive Date: 20250225
  Receipt Date: 20250225
  Transmission Date: 20250408
  Serious: Yes (Hospitalization, Other)
  Sender: MACLEODS
  Company Number: US-MACLEODS PHARMA-MAC2025051786

PATIENT

DRUGS (1)
  1. SEVELAMER [Suspect]
     Active Substance: SEVELAMER
     Indication: End stage renal disease
     Dosage: WITH MEAL
     Route: 065

REACTIONS (8)
  - Anaemia [Unknown]
  - Crystal deposit intestine [Unknown]
  - Haematochezia [Unknown]
  - Gastrointestinal injury [Unknown]
  - Lower gastrointestinal haemorrhage [Recovering/Resolving]
  - Hyperphosphataemia [Recovered/Resolved]
  - Fatigue [Unknown]
  - Abdominal pain lower [Recovering/Resolving]
